FAERS Safety Report 8857257 (Version 2)
Quarter: 2012Q4

REPORT INFORMATION
  Report Type: 
  Country: SE (occurrence: SE)
  Receive Date: 20121024
  Receipt Date: 20121030
  Transmission Date: 20130627
  Serious: Yes (Other)
  Sender: FDA-Public Use
  Company Number: SE-MERCK-1210SWE009211

PATIENT
  Age: 50 Year
  Sex: Male

DRUGS (2)
  1. PROPECIA [Suspect]
     Indication: ALOPECIA
     Dosage: UNK
     Route: 048
     Dates: start: 1997
  2. PROPECIA [Suspect]
     Dosage: UNK
     Route: 048

REACTIONS (2)
  - Prostate cancer [Unknown]
  - Alopecia [Unknown]
